FAERS Safety Report 10280063 (Version 4)
Quarter: 2015Q2

REPORT INFORMATION
  Report Type: Spontaneous
  Country: US (occurrence: US)
  Receive Date: 20140707
  Receipt Date: 20150602
  Transmission Date: 20150821
  Serious: Yes (Hospitalization, Other)
  Sender: FDA-Public Use
  Company Number: US-SA-2014SA085443

PATIENT
  Age: 69 Year
  Sex: Male

DRUGS (11)
  1. DRONEDARONE [Concomitant]
     Active Substance: DRONEDARONE
  2. CIPROFLOXACIN. [Interacting]
     Active Substance: CIPROFLOXACIN
     Route: 065
     Dates: start: 201505
  3. ASPIRIN. [Concomitant]
     Active Substance: ASPIRIN
     Dosage: 5 GRAINS
  4. METOPROLOL [Interacting]
     Active Substance: METOPROLOL
     Indication: PRODUCT USED FOR UNKNOWN INDICATION
     Route: 065
  5. EFFIENT [Concomitant]
     Active Substance: PRASUGREL HYDROCHLORIDE
  6. XARELTO [Concomitant]
     Active Substance: RIVAROXABAN
  7. MULTAQ [Suspect]
     Active Substance: DRONEDARONE
     Indication: ATRIAL FIBRILLATION
     Route: 048
     Dates: start: 2012
  8. METOPROLOL [Interacting]
     Active Substance: METOPROLOL
     Indication: PRODUCT USED FOR UNKNOWN INDICATION
     Route: 065
  9. MULTAQ [Interacting]
     Active Substance: DRONEDARONE
     Indication: ATRIAL FIBRILLATION
     Route: 048
     Dates: start: 201407, end: 20150521
  10. HYDROCHLOROTHIAZIDE. [Concomitant]
     Active Substance: HYDROCHLOROTHIAZIDE
  11. HEPARIN [Concomitant]
     Active Substance: HEPARIN SODIUM
     Indication: THROMBOSIS

REACTIONS (14)
  - Haematocrit decreased [Unknown]
  - Heart rate increased [Recovering/Resolving]
  - Unevaluable event [Unknown]
  - Asthenia [Not Recovered/Not Resolved]
  - Red blood cell count decreased [Unknown]
  - Drug interaction [Unknown]
  - Drug administration error [Unknown]
  - Atrial fibrillation [Not Recovered/Not Resolved]
  - Haemoglobin decreased [Unknown]
  - Hypertension [Recovering/Resolving]
  - Pseudomonas infection [Unknown]
  - Ventricular extrasystoles [Not Recovered/Not Resolved]
  - Bradycardia [Not Recovered/Not Resolved]
  - Blood creatinine increased [Unknown]

NARRATIVE: CASE EVENT DATE: 2014
